FAERS Safety Report 10072124 (Version 9)
Quarter: 2014Q3

REPORT INFORMATION
  Report Type: Spontaneous
  Country: US (occurrence: None)
  Receive Date: 20140409
  Receipt Date: 20140924
  Transmission Date: 20150326
  Serious: Yes (Hospitalization, Other)
  Sender: FDA-Public Use
  Company Number: KAD201404-000386

PATIENT
  Age: 59 Year
  Sex: Male
  Weight: 110 kg

DRUGS (11)
  1. RIBAVIRIN. [Suspect]
     Active Substance: RIBAVIRIN
     Dosage: 600 MG, TWICE DAILY, ORAL ?
     Route: 048
     Dates: start: 20130827, end: 20140326
  2. VITAMIN E (VITAMIN E) (VITAMIN E) [Concomitant]
  3. VIAGRA (SILDENAFIL) (SILDENAFIL) [Concomitant]
  4. CEPHULAC 10 GM/15 ML (LACTULOSE) (LACTULOSE) [Concomitant]
  5. XIFAXAN [Suspect]
     Active Substance: RIFAXIMIN
     Route: 048
  6. VITAMIN A 10000 UNIT (VITAMIN A) (VITAMIN A) [Concomitant]
  7. CHOLECALCIFEROL (CHOLECALCALCIFEROL) (CHOLECALCIFEROL) [Concomitant]
  8. VITAMIN K (VITAMIN K) (VITAMIN K) [Concomitant]
  9. VITAMIN D3 50000 [Concomitant]
     Dosage: 1 TABLET
     Route: 048
  10. GS-7977 [Suspect]
     Active Substance: SOFOSBUVIR
     Route: 048
     Dates: start: 20130827, end: 20140326
  11. ACETAMINOPHEN (ACETAMINOPHEN) (ACETAMINOPHEN) [Concomitant]

REACTIONS (35)
  - Drug-induced liver injury [None]
  - Portal vein pressure increased [None]
  - Haematocrit decreased [None]
  - Cardiac output increased [None]
  - Abdominal pain [None]
  - Hepatic cirrhosis [None]
  - Asthenia [None]
  - Night sweats [None]
  - Renal tubular necrosis [None]
  - Renal failure [None]
  - Renal injury [None]
  - Cholestasis [None]
  - Nausea [None]
  - Pulmonary arterial pressure increased [None]
  - Fatigue [None]
  - Infrequent bowel movements [None]
  - Jaundice [None]
  - Hepatic failure [None]
  - Platelet count decreased [None]
  - Haemoglobin decreased [None]
  - Blood potassium decreased [None]
  - Sepsis [None]
  - Viral infection [None]
  - Blood glucose increased [None]
  - Haemolysis [None]
  - Constipation [None]
  - Portal hypertension [None]
  - Varices oesophageal [None]
  - Hepatorenal syndrome [None]
  - Ascites [None]
  - Decreased appetite [None]
  - Cholelithiasis [None]
  - White blood cell count decreased [None]
  - Encephalopathy [None]
  - Splenomegaly [None]

NARRATIVE: CASE EVENT DATE: 20140328
